FAERS Safety Report 20092817 (Version 4)
Quarter: 2021Q4

REPORT INFORMATION
  Report Type: Spontaneous
  Country: US (occurrence: US)
  Receive Date: 20211120
  Receipt Date: 20211207
  Transmission Date: 20220303
  Serious: No
  Sender: FDA-Public Use
  Company Number: US-UNITED THERAPEUTICS-UNT-2021-023047

PATIENT
  Sex: Female
  Weight: 44.898 kg

DRUGS (6)
  1. TYVASO [Suspect]
     Active Substance: TREPROSTINIL
     Indication: Pulmonary arterial hypertension
     Dosage: UNK
     Dates: start: 20211101
  2. TYVASO [Suspect]
     Active Substance: TREPROSTINIL
     Dosage: 18-72 ?G, QID
     Dates: start: 202111, end: 202111
  3. TYVASO [Suspect]
     Active Substance: TREPROSTINIL
     Dosage: 18-54 ?G, QID
     Dates: start: 202111
  4. TYVASO [Suspect]
     Active Substance: TREPROSTINIL
     Dosage: UNK
  5. LETAIRIS [Concomitant]
     Active Substance: AMBRISENTAN
     Indication: Product used for unknown indication
     Dosage: UNK
     Route: 065
  6. TADALAFIL [Concomitant]
     Active Substance: TADALAFIL
     Indication: Product used for unknown indication
     Dosage: UNK
     Route: 065

REACTIONS (9)
  - Diarrhoea [Recovering/Resolving]
  - Headache [Unknown]
  - Cough [Not Recovered/Not Resolved]
  - Dyspnoea [Unknown]
  - Oedema peripheral [Unknown]
  - Weight increased [Unknown]
  - Dizziness [Unknown]
  - Condition aggravated [Unknown]
  - Swelling [Unknown]

NARRATIVE: CASE EVENT DATE: 20210101
